FAERS Safety Report 12347339 (Version 1)
Quarter: 2016Q2

REPORT INFORMATION
  Report Type: Spontaneous
  Country: GB (occurrence: GB)
  Receive Date: 20160509
  Receipt Date: 20160509
  Transmission Date: 20160815
  Serious: Yes (Other)
  Sender: FDA-Public Use
  Company Number: GB-B. BRAUN MEDICAL INC.-1051666

PATIENT
  Age: 75 Year
  Sex: Female
  Weight: 64 kg

DRUGS (16)
  1. CODEINE PHOSPHATE [Concomitant]
     Active Substance: CODEINE PHOSPHATE
     Dates: start: 20160330, end: 20160409
  2. DIGOXIN. [Concomitant]
     Active Substance: DIGOXIN
     Dates: start: 20150915
  3. PARAFFIN ,YELLOW SOFT EMULSIFYING WAX (EPADERM) [Concomitant]
     Dates: start: 20160331
  4. MORPHINE SULFATE. [Concomitant]
     Active Substance: MORPHINE SULFATE
     Dates: start: 20160405
  5. AMOXICILLIN. [Concomitant]
     Active Substance: AMOXICILLIN
     Dates: start: 20160228, end: 20160306
  6. FUROSEMIDE. [Concomitant]
     Active Substance: FUROSEMIDE
     Dates: start: 20150915
  7. LAXIDO [Concomitant]
     Active Substance: POLYETHYLENE GLYCOL 3350\POTASSIUM CHLORIDE\SODIUM BICARBONATE\SODIUM CHLORIDE
     Dates: start: 20160405
  8. METRONIDAZOLE. [Suspect]
     Active Substance: METRONIDAZOLE
     Dates: start: 20160419, end: 20160419
  9. AMITRIPTYLINE HYDROCHLORIDE. [Concomitant]
     Active Substance: AMITRIPTYLINE HYDROCHLORIDE
     Dates: start: 20160414
  10. RAMIPRIL. [Concomitant]
     Active Substance: RAMIPRIL
     Dates: start: 20150915
  11. PARACETAMOL/ CODEINE PHOSPHATE [Concomitant]
     Dates: start: 20160414
  12. DOXYCYCLINE. [Concomitant]
     Active Substance: DOXYCYCLINE
     Dates: start: 20160405, end: 20160412
  13. LEVOTHYROXINE. [Concomitant]
     Active Substance: LEVOTHYROXINE
     Dates: start: 20150915
  14. WARFARIN SODIUM. [Concomitant]
     Active Substance: WARFARIN SODIUM
     Dates: start: 20150915
  15. BISOPROLOL [Concomitant]
     Active Substance: BISOPROLOL
     Dates: start: 20150915
  16. EPLERENONE. [Concomitant]
     Active Substance: EPLERENONE
     Dates: start: 20150915

REACTIONS (1)
  - Hallucination [None]
